FAERS Safety Report 10509037 (Version 1)
Quarter: 2014Q4

REPORT INFORMATION
  Report Type: Spontaneous
  Country: JP (occurrence: JP)
  Receive Date: 20141009
  Receipt Date: 20141009
  Transmission Date: 20150528
  Serious: Yes (Other)
  Sender: FDA-Public Use
  Company Number: PHHY2014JP129662

PATIENT
  Sex: Male

DRUGS (1)
  1. DIOVAN [Suspect]
     Active Substance: VALSARTAN
     Indication: PRODUCT USED FOR UNKNOWN INDICATION
     Dosage: UNK UKN, UNK
     Route: 048

REACTIONS (9)
  - Myocardial infarction [Unknown]
  - Pigmentation disorder [Unknown]
  - Pallor [Unknown]
  - Cerebral infarction [Unknown]
  - General physical condition abnormal [Unknown]
  - Angina pectoris [Unknown]
  - Cardiac disorder [Unknown]
  - Blood pressure increased [Unknown]
  - Drug ineffective [Unknown]
